FAERS Safety Report 19373067 (Version 1)
Quarter: 2021Q2

REPORT INFORMATION
  Report Type: Spontaneous
  Country: US (occurrence: US)
  Receive Date: 20210604
  Receipt Date: 20210604
  Transmission Date: 20210717
  Serious: Yes (Other)
  Sender: FDA-Public Use
  Company Number: None

PATIENT

DRUGS (2)
  1. RISPERDAL CONSTA [Suspect]
     Active Substance: RISPERIDONE
     Dosage: ?          OTHER FREQUENCY:EVERY 2 WEEKS;?
     Route: 030
  2. RISPERDAL CONSTA [Concomitant]
     Active Substance: RISPERIDONE
     Dates: start: 20210526

REACTIONS (3)
  - Incorrect dose administered [None]
  - Product quality issue [None]
  - Device malfunction [None]

NARRATIVE: CASE EVENT DATE: 20210526
